FAERS Safety Report 23400935 (Version 5)
Quarter: 2024Q1

REPORT INFORMATION
  Report Type: Report from Study
  Country: CN (occurrence: CN)
  Receive Date: 20240115
  Receipt Date: 20240308
  Transmission Date: 20240410
  Serious: Yes (Life-Threatening, Hospitalization, Other)
  Sender: FDA-Public Use
  Company Number: CN-BAXTER-2024BAX010533

PATIENT
  Age: 52 Year
  Sex: Male
  Weight: 64 kg

DRUGS (34)
  1. CYCLOPHOSPHAMIDE [Suspect]
     Active Substance: CYCLOPHOSPHAMIDE
     Indication: Diffuse large B-cell lymphoma
     Dosage: 750 MG/M2, ON DAY 2 OF EACH CYCLE, DOSAGE FORM: INJECTION, MOST RECENT DOSE
     Route: 041
     Dates: start: 20231009, end: 20231208
  2. CYCLOPHOSPHAMIDE [Suspect]
     Active Substance: CYCLOPHOSPHAMIDE
     Dosage: UNK, MOST RECENT DOSE BEFORE THE OCCURRENCE OF THE SERIOUS ADVERSE EVENTS
     Route: 065
     Dates: start: 20231208
  3. RITUXIMAB [Suspect]
     Active Substance: RITUXIMAB
     Indication: Diffuse large B-cell lymphoma
     Dosage: 375 MG/M2, ON DAY 1 OF EACH CYCLE
     Route: 041
     Dates: start: 20231008, end: 20231207
  4. RITUXIMAB [Suspect]
     Active Substance: RITUXIMAB
     Dosage: UNK, MOST RECENT DOSE BEFORE THE OCCURRENCE OF THE SERIOUS ADVERSE EVENTS
     Route: 065
     Dates: start: 20231207
  5. DOXORUBICIN [Suspect]
     Active Substance: DOXORUBICIN
     Indication: Diffuse large B-cell lymphoma
     Dosage: 50 MG/M2, ON DAY 2 OF EACH CYCLE, MOST RECENT DOSE
     Route: 041
     Dates: start: 20231009, end: 20231208
  6. DOXORUBICIN [Suspect]
     Active Substance: DOXORUBICIN
     Dosage: UNK, MOST RECENT DOSE BEFORE THE OCCURRENCE OF THE SERIOUS ADVERSE EVENTS
     Route: 065
     Dates: start: 20231208
  7. VINCRISTINE [Suspect]
     Active Substance: VINCRISTINE
     Indication: Diffuse large B-cell lymphoma
     Dosage: 2 MG, ON DAY 2 OF EACH CYCLE, MOST RECENT DOSE
     Route: 041
     Dates: start: 20231009, end: 20231208
  8. VINCRISTINE [Suspect]
     Active Substance: VINCRISTINE
     Dosage: UNK, MOST RECENT DOSE BEFORE THE OCCURRENCE OF THE SERIOUS ADVERSE EVENTS
     Route: 065
     Dates: start: 20231208
  9. PREDNISONE [Suspect]
     Active Substance: PREDNISONE
     Indication: Diffuse large B-cell lymphoma
     Dosage: 100 MG, FROM DAY 2 TO DAY 6 OF EACH CYCLE, MOST RECENT DOSE
     Route: 048
     Dates: start: 20231008, end: 20231212
  10. PREDNISONE [Suspect]
     Active Substance: PREDNISONE
     Dosage: UNK, MOST RECENT DOSE BEFORE THE OCCURRENCE OF THE SERIOUS ADVERSE EVENTS
     Route: 065
     Dates: start: 20231212
  11. VALSARTAN [Concomitant]
     Active Substance: VALSARTAN
     Dosage: UNK, START DATE: OCT-2023- CONTINUED
     Route: 065
  12. SODIUM BICARBONATE [Concomitant]
     Active Substance: SODIUM BICARBONATE
     Dosage: UNK
     Route: 065
     Dates: start: 20231208, end: 20231209
  13. ROXATIDINE ACETATE HYDROCHLORIDE [Concomitant]
     Active Substance: ROXATIDINE ACETATE HYDROCHLORIDE
     Dosage: UNK
     Route: 065
     Dates: start: 20231208, end: 20231209
  14. ONDANSETRON HYDROCHLORIDE [Concomitant]
     Active Substance: ONDANSETRON HYDROCHLORIDE
     Dosage: UNK
     Route: 065
     Dates: start: 20231208, end: 20231209
  15. IBUPROFEN [Concomitant]
     Active Substance: IBUPROFEN
     Dosage: UNK, SUSTAINED-RELEASE CAPSULES
     Route: 065
     Dates: start: 20231207, end: 20231207
  16. DIPHENHYDRAMINE HYDROCHLORIDE [Concomitant]
     Active Substance: DIPHENHYDRAMINE HYDROCHLORIDE
     Dosage: UNK
     Route: 065
     Dates: start: 20231207, end: 20231207
  17. DEXAMETHASONE SODIUM PHOSPHATE [Concomitant]
     Active Substance: DEXAMETHASONE PHOSPHATE\DEXAMETHASONE SODIUM PHOSPHATE
     Dosage: UNK
     Route: 065
     Dates: start: 20231207, end: 20231208
  18. METHOTREXATE [Concomitant]
     Active Substance: METHOTREXATE
     Dosage: UNK
     Route: 065
     Dates: start: 20231208, end: 20231208
  19. PEGYLATED GRANULOCYTE COLONY STIMULATING FACTOR [Concomitant]
     Dosage: UNK
     Route: 065
     Dates: start: 20231209, end: 20231209
  20. POTASSIUM CHLORIDE [Concomitant]
     Active Substance: POTASSIUM CHLORIDE
     Dosage: UNK
     Route: 065
     Dates: start: 20231222, end: 20231228
  21. MANNITOL [Concomitant]
     Active Substance: MANNITOL
     Dosage: UNK
     Route: 065
     Dates: start: 20231222, end: 20231228
  22. MEROPENEM [Concomitant]
     Active Substance: MEROPENEM
     Dosage: UNK
     Route: 065
     Dates: start: 20231222, end: 20231226
  23. FLUCONAZOLE [Concomitant]
     Active Substance: FLUCONAZOLE
     Dosage: UNK
     Route: 065
     Dates: start: 20231222, end: 20231223
  24. INTACTED PROTEIN ENTERAL NUTRITION [Concomitant]
     Dosage: UNK, POWDER
     Route: 065
     Dates: start: 20231222, end: 20231228
  25. OSELTAMIVIR PHOSPHATE [Concomitant]
     Active Substance: OSELTAMIVIR PHOSPHATE
     Dosage: UNK
     Route: 065
     Dates: start: 20231222, end: 20231228
  26. ESOMEPRAZOLE SODIUM [Concomitant]
     Active Substance: ESOMEPRAZOLE SODIUM
     Dosage: UNK
     Route: 065
     Dates: start: 20231223, end: 20240104
  27. VITAMIN C [Concomitant]
     Active Substance: ASCORBIC ACID
     Dosage: UNK
     Route: 065
     Dates: start: 20231223, end: 20231228
  28. METOCLOPRAMIDE [Concomitant]
     Active Substance: METOCLOPRAMIDE
     Dosage: UNK
     Route: 065
     Dates: start: 20231224, end: 20231228
  29. METHYLPREDNISOLONE SODIUM SUCCINATE [Concomitant]
     Active Substance: METHYLPREDNISOLONE SODIUM SUCCINATE
     Dosage: UNK
     Route: 065
     Dates: start: 20231223, end: 20231227
  30. GANCICLOVIR [Concomitant]
     Active Substance: GANCICLOVIR
     Dosage: UNK
     Route: 065
     Dates: start: 20231223, end: 20231226
  31. UNSPECIFIED INGREDIENT [Concomitant]
     Active Substance: UNSPECIFIED INGREDIENT
     Dosage: UNK, CONTINUED
     Route: 065
     Dates: start: 20231226
  32. MOXIFLOXACIN HYDROCHLORIDE [Concomitant]
     Active Substance: MOXIFLOXACIN HYDROCHLORIDE\MOXIFLOXACIN HYDROCHLORIDE MONOHYDRATE
     Dosage: UNK
     Route: 065
     Dates: start: 20231226, end: 20240104
  33. PREDNISONE [Concomitant]
     Active Substance: PREDNISONE
     Dosage: UNK, CONTINUED
     Route: 065
     Dates: start: 20231228
  34. AVELOX [Concomitant]
     Active Substance: MOXIFLOXACIN HYDROCHLORIDE
     Dosage: UNK, CONTINUED
     Route: 065
     Dates: start: 20231228

REACTIONS (2)
  - Hypovolaemic shock [Recovered/Resolved]
  - Acute kidney injury [Recovered/Resolved]

NARRATIVE: CASE EVENT DATE: 20240103
